FAERS Safety Report 6143348-5 (Version None)
Quarter: 2009Q2

REPORT INFORMATION
  Report Type: 
  Country: None (occurrence: None)
  Receive Date: 20090403
  Receipt Date: 20090401
  Transmission Date: 20091009
  Serious: Yes (Hospitalization)
  Sender: FDA-Public Use
  Company Number: B0568278A

PATIENT
  Sex: Female

DRUGS (3)
  1. FORTUM [Suspect]
     Dosage: 2G THREE TIMES PER DAY
     Route: 042
     Dates: start: 20081212, end: 20081213
  2. ZYVOXID [Concomitant]
  3. FLUCONAZOLE [Concomitant]

REACTIONS (2)
  - PRURITUS [None]
  - RASH [None]
